FAERS Safety Report 11307491 (Version 2)
Quarter: 2015Q3

REPORT INFORMATION
  Report Type: Spontaneous
  Country: JP (occurrence: JP)
  Receive Date: 20150723
  Receipt Date: 20150908
  Transmission Date: 20151125
  Serious: Yes (Hospitalization)
  Sender: FDA-Public Use
  Company Number: JP-MYLANLABS-2015M1023559

PATIENT

DRUGS (2)
  1. PREDONINE [Suspect]
     Active Substance: PREDNISOLONE\PREDNISOLONE ACETATE\PREDNISOLONE SODIUM SUCCINATE
     Dosage: 12 MG, QD
     Route: 048
  2. PREDONINE [Suspect]
     Active Substance: PREDNISOLONE\PREDNISOLONE ACETATE\PREDNISOLONE SODIUM SUCCINATE
     Indication: POLYARTERITIS NODOSA
     Dosage: 30 MG, QD
     Route: 048

REACTIONS (4)
  - Sepsis [Recovering/Resolving]
  - Cellulitis [Recovering/Resolving]
  - Beta haemolytic streptococcal infection [Recovering/Resolving]
  - Septic shock [Recovering/Resolving]
